FAERS Safety Report 8137422-1 (Version None)
Quarter: 2012Q1

REPORT INFORMATION
  Report Type: 
  Country: None (occurrence: None)
  Receive Date: 20120209
  Receipt Date: 20120201
  Transmission Date: 20120608
  Serious: Yes (Hospitalization)
  Sender: FDA-Public Use
  Company Number: A0964630A

PATIENT
  Age: 52 Year
  Sex: Female

DRUGS (4)
  1. BENDROFLUAZIDE [Concomitant]
  2. LAMOTRIGINE [Suspect]
     Indication: EPILEPSY
  3. CARBAMAZEPINE [Suspect]
     Indication: EPILEPSY
     Dosage: 600 MG
  4. CITALOPRAM HYDROBROMIDE [Concomitant]

REACTIONS (12)
  - HYPOKALAEMIA [None]
  - HYPONATRAEMIA [None]
  - HYPERAMMONAEMIA [None]
  - LETHARGY [None]
  - MUSCULAR WEAKNESS [None]
  - COORDINATION ABNORMAL [None]
  - HYPERREFLEXIA [None]
  - URINARY TRACT INFECTION ENTEROCOCCAL [None]
  - VULVOVAGINAL DISCOMFORT [None]
  - POLLAKIURIA [None]
  - CONFUSIONAL STATE [None]
  - SOMNOLENCE [None]
